FAERS Safety Report 20629121 (Version 9)
Quarter: 2022Q2

REPORT INFORMATION
  Report Type: Spontaneous
  Country: US (occurrence: US)
  Receive Date: 20220323
  Receipt Date: 20220624
  Transmission Date: 20220721
  Serious: Yes (Hospitalization, Other)
  Sender: FDA-Public Use
  Company Number: US-BAYER-2022A041478

PATIENT
  Age: 70 Year
  Sex: Male

DRUGS (13)
  1. ADEMPAS [Suspect]
     Active Substance: RIOCIGUAT
     Indication: Product used for unknown indication
     Dosage: 1 MG, TID
     Route: 048
     Dates: start: 20220316
  2. ADEMPAS [Suspect]
     Active Substance: RIOCIGUAT
     Indication: Product used for unknown indication
     Dosage: 1.5 MG
     Route: 065
     Dates: end: 20220516
  3. AMBRISENTAN [Suspect]
     Active Substance: AMBRISENTAN
     Indication: Pulmonary hypertension
     Dosage: 10 MG, QD, AS NECESSARY
     Route: 048
     Dates: start: 20190131
  4. AMBRISENTAN [Suspect]
     Active Substance: AMBRISENTAN
     Indication: Scleroderma
     Dosage: 10 MG QD AS NECESSARY
     Route: 065
  5. AMBRISENTAN [Suspect]
     Active Substance: AMBRISENTAN
     Indication: Pulmonary arterial hypertension
  6. AMBRISENTAN [Suspect]
     Active Substance: AMBRISENTAN
     Indication: Pulmonary arterial hypertension
  7. LASIX [Suspect]
     Active Substance: FUROSEMIDE
     Indication: Product used for unknown indication
     Route: 065
  8. ZOFRAN [Concomitant]
     Active Substance: ONDANSETRON HYDROCHLORIDE
     Indication: Product used for unknown indication
     Dosage: UNK
     Dates: start: 20220323
  9. UPTRAVI [Concomitant]
     Active Substance: SELEXIPAG
     Dosage: 1000 DF, BID
  10. ADCIRCA [Concomitant]
     Active Substance: TADALAFIL
     Dosage: UNK
  11. SILDENAFIL [Concomitant]
     Active Substance: SILDENAFIL
     Dosage: UNK
     Dates: end: 2022
  12. SILDENAFIL [Concomitant]
     Active Substance: SILDENAFIL
     Dosage: 20 MG, TID
  13. MIDODRINE [Concomitant]
     Active Substance: MIDODRINE

REACTIONS (33)
  - Cardiac failure congestive [Recovered/Resolved]
  - Oedema [Recovered/Resolved]
  - Right ventricular failure [Recovered/Resolved]
  - Dyspnoea [Recovered/Resolved]
  - Urinary tract infection [Recovered/Resolved]
  - Hypotension [Recovering/Resolving]
  - Asthenia [Not Recovered/Not Resolved]
  - Diarrhoea [Not Recovered/Not Resolved]
  - Oxygen therapy [None]
  - Pulmonary oedema [Not Recovered/Not Resolved]
  - Fatigue [Unknown]
  - Headache [Unknown]
  - Muscle spasms [Unknown]
  - Nausea [Not Recovered/Not Resolved]
  - Gait disturbance [Unknown]
  - Dizziness [Unknown]
  - Hypersomnia [Unknown]
  - Muscular weakness [Recovered/Resolved]
  - Pain [Recovered/Resolved]
  - Constipation [Not Recovered/Not Resolved]
  - Abdominal discomfort [Unknown]
  - Insomnia [Not Recovered/Not Resolved]
  - Feeling abnormal [Not Recovered/Not Resolved]
  - Illness [None]
  - Dyspnoea exertional [None]
  - Feeling cold [Not Recovered/Not Resolved]
  - Ageusia [Not Recovered/Not Resolved]
  - Depression [Unknown]
  - Dissociation [Unknown]
  - Faeces soft [Not Recovered/Not Resolved]
  - Flatulence [Not Recovered/Not Resolved]
  - Hypervolaemia [Not Recovered/Not Resolved]
  - Fluid retention [Recovering/Resolving]

NARRATIVE: CASE EVENT DATE: 20220101
